FAERS Safety Report 4775647-3 (Version None)
Quarter: 2005Q3

REPORT INFORMATION
  Report Type: 
  Country: None (occurrence: None)
  Receive Date: 20050920
  Receipt Date: 20050920
  Transmission Date: 20060218
  Serious: Yes (Other)
  Sender: FDA-Public Use
  Company Number: None

PATIENT
  Age: 29 Year
  Sex: Male
  Weight: 86.1834 kg

DRUGS (2)
  1. AMBIEN [Suspect]
     Dosage: 10 MG 1 - 2 QHS PO
     Route: 048
     Dates: start: 20050204
  2. CITALOPRAM [Concomitant]

REACTIONS (1)
  - AMNESIA [None]
